FAERS Safety Report 10079871 (Version 3)
Quarter: 2016Q1

REPORT INFORMATION
  Report Type: Spontaneous
  Country: IR (occurrence: IR)
  Receive Date: 20140415
  Receipt Date: 20160209
  Transmission Date: 20160525
  Serious: Yes (Other)
  Sender: FDA-Public Use
  Company Number: IR-BRISTOL-MYERS SQUIBB COMPANY-20630927

PATIENT
  Age: 28 Year
  Sex: Female

DRUGS (1)
  1. METFORMIN HYDROCHLORIDE. [Suspect]
     Active Substance: METFORMIN HYDROCHLORIDE
     Indication: OVULATION INDUCTION
     Dosage: 1500 MG, QD
     Route: 065

REACTIONS (4)
  - Ovarian cyst [Unknown]
  - Off label use [Unknown]
  - Ectopic pregnancy [Unknown]
  - Maternal exposure during pregnancy [Unknown]
